FAERS Safety Report 9767409 (Version 1)
Quarter: 2013Q4

REPORT INFORMATION
  Report Type: Report from Study
  Country: GR (occurrence: GR)
  Receive Date: 20131217
  Receipt Date: 20131217
  Transmission Date: 20140711
  Serious: Yes (Death, Other)
  Sender: FDA-Public Use
  Company Number: GR-ASTELLAS-2013US012995

PATIENT
  Age: 78 Year
  Sex: Male

DRUGS (2)
  1. ERLOTINIB TABLET [Suspect]
     Indication: SQUAMOUS CELL CARCINOMA OF LUNG
     Dosage: 150 MG, UNKNOWN/D
     Route: 065
     Dates: start: 20111111
  2. ERLOTINIB TABLET [Suspect]
     Dosage: UNK
     Route: 065
     Dates: end: 20111212

REACTIONS (6)
  - Death [Fatal]
  - Malignant neoplasm progression [Unknown]
  - Diarrhoea [Unknown]
  - Mucosal inflammation [Unknown]
  - Fatigue [Unknown]
  - Rash [Unknown]
